FAERS Safety Report 10092046 (Version 2)
Quarter: 2014Q2

REPORT INFORMATION
  Report Type: Spontaneous
  Country: US (occurrence: US)
  Receive Date: 20140421
  Receipt Date: 20140421
  Transmission Date: 20141212
  Serious: No
  Sender: FDA-Public Use
  Company Number: US-GILEAD-2013-0071155

PATIENT
  Age: 76 Year
  Sex: Female

DRUGS (3)
  1. LETAIRIS [Suspect]
     Indication: PRODUCT USED FOR UNKNOWN INDICATION
     Dosage: 5 MG, QD
     Route: 048
     Dates: start: 20130208
  2. TOPROL [Concomitant]
  3. DILTIAZEM [Concomitant]

REACTIONS (5)
  - Poor quality sleep [Unknown]
  - Feeling abnormal [Unknown]
  - Constipation [Unknown]
  - Dyspnoea [Unknown]
  - Peripheral swelling [Unknown]
